FAERS Safety Report 6519427-7 (Version None)
Quarter: 2009Q4

REPORT INFORMATION
  Report Type: 
  Country: None (occurrence: None)
  Receive Date: 20091224
  Receipt Date: 20091224
  Transmission Date: 20100525
  Serious: Yes (Disabling, Other)
  Sender: FDA-Public Use
  Company Number: None

PATIENT
  Age: 59 Year
  Sex: Female
  Weight: 93.8946 kg

DRUGS (1)
  1. CLARITHROMYCIN [Suspect]
     Indication: ACUTE SINUSITIS
     Dosage: ORAL TABLETS  APPROX. 10 DAYS LATE SEPT.
     Route: 048

REACTIONS (7)
  - DIARRHOEA [None]
  - DYSGEUSIA [None]
  - MIDDLE EAR EFFUSION [None]
  - PAROSMIA [None]
  - URINARY TRACT INFECTION [None]
  - VERTIGO [None]
  - WEIGHT DECREASED [None]
